FAERS Safety Report 4638745-0 (Version None)
Quarter: 2005Q2

REPORT INFORMATION
  Report Type: 
  Country: None (occurrence: None)
  Receive Date: 20050418
  Receipt Date: 20050418
  Transmission Date: 20051028
  Serious: No
  Sender: FDA-Public Use
  Company Number: None

PATIENT
  Sex: Female
  Weight: 38.9 kg

DRUGS (2)
  1. CISPLATIN [Suspect]
     Dosage: 100 MG/M2 ON DAYS 1 AND 22.
     Dates: start: 20050315
  2. RADIATION [Suspect]

REACTIONS (5)
  - DEHYDRATION [None]
  - DIARRHOEA [None]
  - PULMONARY CONGESTION [None]
  - PYREXIA [None]
  - REFUSAL OF TREATMENT BY PATIENT [None]
